FAERS Safety Report 22136441 (Version 1)
Quarter: 2023Q1

REPORT INFORMATION
  Report Type: Spontaneous
  Country: FR (occurrence: FR)
  Receive Date: 20230324
  Receipt Date: 20230324
  Transmission Date: 20230417
  Serious: Yes (Other)
  Sender: FDA-Public Use
  Company Number: None

PATIENT
  Age: 38 Year
  Sex: Male

DRUGS (1)
  1. TRAMADOL [Suspect]
     Active Substance: TRAMADOL
     Indication: Product used for unknown indication
     Dosage: TRAMADOL 100MG AND 200MG EXTENDED-RELEASE
     Route: 065

REACTIONS (2)
  - Drug abuse [Not Recovered/Not Resolved]
  - Pharmaceutical nomadism [Not Recovered/Not Resolved]
